FAERS Safety Report 21161157 (Version 5)
Quarter: 2024Q1

REPORT INFORMATION
  Report Type: Other
  Country: US (occurrence: None)
  Receive Date: 20220802
  Receipt Date: 20240105
  Transmission Date: 20240410
  Serious: Yes (Hospitalization, Other)
  Sender: FDA-Public Use
  Company Number: US-ROCHE-3145929

PATIENT
  Age: 55 Year
  Sex: Male
  Weight: 68.1 kg

DRUGS (4)
  1. OCREVUS [Suspect]
     Active Substance: OCRELIZUMAB
     Indication: Primary progressive multiple sclerosis
     Dosage: LAST DATE OF TREATMENT: MAR/2021, 30/MAY/2023,
     Route: 042
     Dates: start: 20180402
  2. OCREVUS [Suspect]
     Active Substance: OCRELIZUMAB
     Route: 042
  3. OXYBUTYNIN [Concomitant]
     Active Substance: OXYBUTYNIN
     Indication: Micturition urgency
     Route: 048
     Dates: start: 2017
  4. ATORVASTATIN [Concomitant]
     Active Substance: ATORVASTATIN
     Indication: Blood cholesterol increased
     Route: 048
     Dates: start: 2018

REACTIONS (11)
  - COVID-19 pneumonia [Recovered/Resolved]
  - Loss of consciousness [Recovered/Resolved]
  - Staphylococcal infection [Recovered/Resolved]
  - Pyrexia [Recovered/Resolved]
  - Cellulitis [Recovered/Resolved]
  - Rash [Unknown]
  - Sepsis [Unknown]
  - Erythema [Unknown]
  - COVID-19 [Unknown]
  - Fall [Unknown]
  - Multiple sclerosis [Unknown]

NARRATIVE: CASE EVENT DATE: 20220618
